FAERS Safety Report 21669596 (Version 2)
Quarter: 2022Q4

REPORT INFORMATION
  Report Type: Spontaneous
  Country: JP (occurrence: JP)
  Receive Date: 20221201
  Receipt Date: 20221212
  Transmission Date: 20230112
  Serious: Yes (Death, Other)
  Sender: FDA-Public Use
  Company Number: JP-GSKJP-JP2022JPN178126AA

PATIENT

DRUGS (4)
  1. ZOVIRAX [Suspect]
     Active Substance: ACYCLOVIR
     Indication: Herpes virus infection
     Dosage: UNK
  2. ZOVIRAX [Suspect]
     Active Substance: ACYCLOVIR
     Indication: Neuritis cranial
  3. PREDNISOLONE [Concomitant]
     Active Substance: PREDNISOLONE
     Indication: Herpes virus infection
     Dosage: 40 MG/DAY
  4. PREDNISOLONE [Concomitant]
     Active Substance: PREDNISOLONE
     Indication: Neuritis cranial
     Dosage: UNK (TAPERED DOWN FROM 40 MG/DAY)

REACTIONS (10)
  - Meningitis fungal [Fatal]
  - Osteomyelitis [Unknown]
  - Altered state of consciousness [Unknown]
  - Cerebellar infarction [Unknown]
  - Brain stem infarction [Unknown]
  - Pneumonia aspiration [Unknown]
  - Condition aggravated [Unknown]
  - Vomiting [Unknown]
  - Product use in unapproved indication [Unknown]
  - Therapeutic product ineffective for unapproved indication [Unknown]
